FAERS Safety Report 11121291 (Version 2)
Quarter: 2015Q2

REPORT INFORMATION
  Report Type: Spontaneous
  Country: JP (occurrence: JP)
  Receive Date: 20150519
  Receipt Date: 20150522
  Transmission Date: 20150821
  Serious: Yes (Other)
  Sender: FDA-Public Use
  Company Number: JP-SA-2015SA037043

PATIENT
  Age: 38 Year
  Sex: Female
  Weight: 45 kg

DRUGS (4)
  1. FABRAZYME [Suspect]
     Active Substance: AGALSIDASE BETA
     Indication: FABRY^S DISEASE
     Route: 041
     Dates: start: 20141106, end: 20150305
  2. CALONAL [Concomitant]
     Active Substance: ACETAMINOPHEN
     Route: 048
     Dates: start: 20141106, end: 20150305
  3. LAMICTAL [Concomitant]
     Active Substance: LAMOTRIGINE
     Route: 048
  4. CELESTAMINE [Concomitant]
     Active Substance: BETAMETHASONE\DEXCHLORPHENIRAMINE MALEATE
     Dosage: DOSE: BETAMETHASONE-0.5MG?          CHLORPHENERAMINE- 4MG
     Route: 048
     Dates: start: 20141106, end: 20150305

REACTIONS (2)
  - Exposure during pregnancy [Unknown]
  - Abortion missed [Unknown]
